FAERS Safety Report 12328418 (Version 1)
Quarter: 2016Q2

REPORT INFORMATION
  Report Type: Spontaneous
  Country: US (occurrence: US)
  Receive Date: 20160503
  Receipt Date: 20160503
  Transmission Date: 20160815
  Serious: No
  Sender: FDA-Public Use
  Company Number: US-BEH-2014044506

PATIENT
  Age: 69 Year
  Sex: Female

DRUGS (1)
  1. HIZENTRA [Suspect]
     Active Substance: HUMAN IMMUNOGLOBULIN G
     Indication: IMMUNODEFICIENCY COMMON VARIABLE

REACTIONS (3)
  - Pharyngeal oedema [Unknown]
  - Irritable bowel syndrome [Unknown]
  - Malaise [Unknown]

NARRATIVE: CASE EVENT DATE: 20140805
